FAERS Safety Report 15708497 (Version 2)
Quarter: 2018Q4

REPORT INFORMATION
  Report Type: Other
  Country: ES (occurrence: ES)
  Receive Date: 20181211
  Receipt Date: 20181220
  Transmission Date: 20190205
  Serious: Yes (Hospitalization)
  Sender: FDA-Public Use
  Company Number: ES-AJANTA PHARMA USA INC.-2059974

PATIENT
  Age: 40 Year
  Sex: Female

DRUGS (1)
  1. DULOXETINE (ANDA 208706) [Suspect]
     Active Substance: DULOXETINE
     Route: 048

REACTIONS (2)
  - Intentional overdose [Recovered/Resolved]
  - Opsoclonus myoclonus [Recovering/Resolving]

NARRATIVE: CASE EVENT DATE: 20181105
